FAERS Safety Report 18749043 (Version 3)
Quarter: 2021Q2

REPORT INFORMATION
  Report Type: Other
  Country: GB (occurrence: GB)
  Receive Date: 20210116
  Receipt Date: 20210427
  Transmission Date: 20210717
  Serious: Yes (Other)
  Sender: FDA-Public Use
  Company Number: GB-ROCHE-2583618

PATIENT
  Age: 81 Year
  Sex: Female

DRUGS (4)
  1. ROACTEMRA [Suspect]
     Active Substance: TOCILIZUMAB
     Route: 058
     Dates: start: 202003
  2. METHOTREXATE. [Concomitant]
     Active Substance: METHOTREXATE
  3. ROACTEMRA [Suspect]
     Active Substance: TOCILIZUMAB
     Indication: RHEUMATOID ARTHRITIS
     Dosage: PRE?FILLED PEN
     Route: 058
     Dates: start: 20200225
  4. ROACTEMRA [Suspect]
     Active Substance: TOCILIZUMAB
     Route: 058
     Dates: start: 20200526

REACTIONS (4)
  - Urinary tract infection [Unknown]
  - Skin laceration [Unknown]
  - Wound infection [Unknown]
  - Infection [Unknown]
